FAERS Safety Report 7031451-7 (Version None)
Quarter: 2010Q4

REPORT INFORMATION
  Report Type: 
  Country: None (occurrence: None)
  Receive Date: 20101006
  Receipt Date: 20100927
  Transmission Date: 20110411
  Serious: Yes (Hospitalization)
  Sender: FDA-Public Use
  Company Number: DE-ELI_LILLY_AND_COMPANY-DE201009007411

PATIENT
  Sex: Male

DRUGS (16)
  1. HUMULIN N [Suspect]
     Indication: DIABETES MELLITUS
     Dosage: 12 IU, EACH MORNING
     Route: 058
     Dates: start: 20100907
  2. HUMULIN N [Suspect]
     Dosage: 4 IU, DAILY (1/D)
     Route: 058
     Dates: start: 20100907
  3. HUMULIN N [Suspect]
     Dosage: 8 IU, EACH EVENING
     Route: 058
     Dates: start: 20100907
  4. HUMULIN R [Suspect]
     Indication: DIABETES MELLITUS
     Dosage: 8 IU, DAILY (1/D)
     Route: 058
     Dates: start: 20100907
  5. ACC /00082801/ [Concomitant]
     Dosage: 600 D/F, UNK
  6. AMLODIPINE [Concomitant]
  7. ASPIRIN [Concomitant]
     Dosage: 100 D/F, UNK
  8. AVELOX [Concomitant]
  9. BISOPROLOL [Concomitant]
  10. CLEXANE [Concomitant]
  11. PANTOPRAZOLE [Concomitant]
  12. TORASEMIDE [Concomitant]
  13. SPIRIVA [Concomitant]
  14. VIANI [Concomitant]
  15. CLOPIDOGREL [Concomitant]
  16. LISINOPRIL [Concomitant]

REACTIONS (5)
  - BLOOD GLUCOSE FLUCTUATION [None]
  - BRONCHITIS [None]
  - OEDEMA [None]
  - PNEUMONIA [None]
  - SYNCOPE [None]
